APPROVED DRUG PRODUCT: ANAGRELIDE HYDROCHLORIDE
Active Ingredient: ANAGRELIDE HYDROCHLORIDE
Strength: EQ 1MG BASE
Dosage Form/Route: CAPSULE;ORAL
Application: A076811 | Product #002 | TE Code: AB
Applicant: NOVITIUM PHARMA LLC
Approved: Apr 18, 2005 | RLD: No | RS: No | Type: RX